FAERS Safety Report 20090300 (Version 1)
Quarter: 2021Q4

REPORT INFORMATION
  Report Type: Report from Study
  Country: US (occurrence: US)
  Receive Date: 20211119
  Receipt Date: 20211119
  Transmission Date: 20220303
  Serious: Yes (Other)
  Sender: FDA-Public Use
  Company Number: US-MYLANLABS-2021M1083570

PATIENT
  Sex: Female
  Weight: 91 kg

DRUGS (2)
  1. GLATIRAMER ACETATE [Suspect]
     Active Substance: GLATIRAMER ACETATE
     Indication: Relapsing-remitting multiple sclerosis
     Dosage: 40 MILLIGRAM, 3XW
     Route: 058
  2. TRENTAL [Concomitant]
     Active Substance: PENTOXIFYLLINE
     Dosage: UNK

REACTIONS (7)
  - Loss of consciousness [Unknown]
  - Accident [Unknown]
  - Fall [Unknown]
  - Fear of injection [Unknown]
  - Weight bearing difficulty [Unknown]
  - Hypokinesia [Unknown]
  - Injection site pain [Unknown]
